FAERS Safety Report 22037747 (Version 2)
Quarter: 2023Q2

REPORT INFORMATION
  Report Type: Spontaneous
  Country: RU (occurrence: RU)
  Receive Date: 20230227
  Receipt Date: 20230526
  Transmission Date: 20230722
  Serious: Yes (Death, Other)
  Sender: FDA-Public Use
  Company Number: RU-SA-2023SA060608

PATIENT
  Sex: Female

DRUGS (1)
  1. PLAVIX [Suspect]
     Active Substance: CLOPIDOGREL BISULFATE
     Indication: Anticoagulant therapy
     Dosage: 75 MG
     Route: 048
     Dates: start: 202206, end: 202212

REACTIONS (5)
  - Left ventricular failure [Fatal]
  - Myocardial infarction [Fatal]
  - Cardiac failure congestive [Unknown]
  - Hypertensive heart disease [Unknown]
  - Drug ineffective [Unknown]
